FAERS Safety Report 4394598-X (Version None)
Quarter: 2004Q3

REPORT INFORMATION
  Report Type: 
  Country: None (occurrence: None)
  Receive Date: 20040712
  Receipt Date: 20040702
  Transmission Date: 20050211
  Serious: Yes (Disabling)
  Sender: FDA-Public Use
  Company Number: US-ROCHE-373470

PATIENT
  Age: 87 Year
  Sex: Female
  Weight: 56.7 kg

DRUGS (2)
  1. VALIUM [Suspect]
     Indication: ANXIETY
     Route: 048
     Dates: start: 19990615, end: 20020615
  2. MOBAN [Suspect]
     Indication: ANXIETY
     Route: 048
     Dates: start: 19990615, end: 20020615

REACTIONS (1)
  - TARDIVE DYSKINESIA [None]
